FAERS Safety Report 4762890-2 (Version None)
Quarter: 2005Q3

REPORT INFORMATION
  Report Type: 
  Country: None (occurrence: None)
  Receive Date: 20050907
  Receipt Date: 20050711
  Transmission Date: 20060218
  Serious: Yes (Hospitalization)
  Sender: FDA-Public Use
  Company Number: PHHO2005DK11040

PATIENT
  Age: 30 Year
  Sex: Female

DRUGS (2)
  1. CFTY720 VS MMF [Suspect]
     Indication: RENAL TRANSPLANT
     Dosage: CODE NOT BROKEN
     Route: 048
     Dates: end: 20050803
  2. NEORAL [Suspect]
     Indication: RENAL TRANSPLANT

REACTIONS (4)
  - BLOOD CREATININE INCREASED [None]
  - GLOMERULONEPHRITIS PROLIFERATIVE [None]
  - KIDNEY TRANSPLANT REJECTION [None]
  - NEPHRITIS [None]
